FAERS Safety Report 5514830-6 (Version None)
Quarter: 2007Q4

REPORT INFORMATION
  Report Type: 
  Country: None (occurrence: None)
  Receive Date: 20071109
  Receipt Date: 20071025
  Transmission Date: 20080405
  Serious: Yes (Hospitalization, Disabling)
  Sender: FDA-Public Use
  Company Number: TRP_00952_2007

PATIENT
  Sex: Female

DRUGS (14)
  1. RIBAVIRIN [Suspect]
     Indication: HEPATITIS C
     Dosage: (600 MG BID ORAL) , (DF ORAL)
     Route: 048
     Dates: start: 20070101, end: 20070501
  2. RIBAVIRIN [Suspect]
     Indication: HEPATITIS C
     Dosage: (600 MG BID ORAL) , (DF ORAL)
     Route: 048
     Dates: start: 20070602, end: 20070615
  3. RIBAVIRIN [Suspect]
     Indication: HEPATITIS C
     Dosage: (200 MG BID CAPSULES ORAL)
     Route: 048
     Dates: start: 20070701
  4. PEG-INTRON [Suspect]
     Indication: HEPATITIS C
     Dosage: (1 DF 1X/WEEK 150 MCG/0.5 ML SUBCUTANEOUS), (1 DF 1X/WEEK 150 MCG/0.5 ML SUBCUTANEOUS)
     Route: 058
     Dates: start: 20070201, end: 20070401
  5. PEG-INTRON [Suspect]
     Indication: HEPATITIS C
     Dosage: (1 DF 1X/WEEK 150 MCG/0.5 ML SUBCUTANEOUS), (1 DF 1X/WEEK 150 MCG/0.5 ML SUBCUTANEOUS)
     Route: 058
     Dates: start: 20070401, end: 20070801
  6. LEVOTHYROXINE SODIUM [Concomitant]
  7. FLONASE [Concomitant]
  8. SINGULAIR [Concomitant]
  9. LIPITOR [Concomitant]
  10. GABAPENTIN [Concomitant]
  11. VALIUM [Concomitant]
  12. COZAAR [Concomitant]
  13. HUMALOG [Concomitant]
  14. DAILY MULTIPLE VITAMINS [Concomitant]

REACTIONS (46)
  - ANAEMIA [None]
  - ARTHRALGIA [None]
  - BACK PAIN [None]
  - BLOOD THYROID STIMULATING HORMONE DECREASED [None]
  - BONE SWELLING [None]
  - CHEST DISCOMFORT [None]
  - CHILLS [None]
  - COUGH [None]
  - CRYING [None]
  - DEPRESSION [None]
  - DIZZINESS [None]
  - DRY SKIN [None]
  - DYSPNOEA EXERTIONAL [None]
  - FALL [None]
  - FATIGUE [None]
  - HEADACHE [None]
  - HYPOAESTHESIA [None]
  - IMPAIRED WORK ABILITY [None]
  - INAPPROPRIATE SCHEDULE OF DRUG ADMINISTRATION [None]
  - INCORRECT DOSE ADMINISTERED [None]
  - INJECTION SITE CELLULITIS [None]
  - JOINT STIFFNESS [None]
  - MYALGIA [None]
  - NAUSEA [None]
  - NEUTROPENIA [None]
  - NIGHT SWEATS [None]
  - ORAL CANDIDIASIS [None]
  - PAIN [None]
  - PAIN IN JAW [None]
  - PARAESTHESIA [None]
  - PHARYNGOLARYNGEAL PAIN [None]
  - POLYDIPSIA [None]
  - PRURITUS [None]
  - PYREXIA [None]
  - RENAL FAILURE [None]
  - SLEEP DISORDER [None]
  - STENT PLACEMENT [None]
  - THERAPEUTIC RESPONSE DECREASED [None]
  - THROMBOCYTOPENIA [None]
  - TINNITUS [None]
  - UNEVALUABLE EVENT [None]
  - VERTIGO [None]
  - VISION BLURRED [None]
  - WEIGHT DECREASED [None]
  - WHITE BLOOD CELL COUNT DECREASED [None]
  - WRONG TECHNIQUE IN DRUG USAGE PROCESS [None]
